FAERS Safety Report 24225060 (Version 1)
Quarter: 2024Q3

REPORT INFORMATION
  Report Type: Spontaneous
  Country: US (occurrence: None)
  Receive Date: 20240820
  Receipt Date: 20240820
  Transmission Date: 20241017
  Serious: Yes (Other)
  Sender: AXSOME THERAPEUTICS
  Company Number: US-Axsome Therapeutics, Inc.-AXS202408-001156

PATIENT
  Age: 61 Year
  Sex: Male

DRUGS (1)
  1. AUVELITY [Suspect]
     Active Substance: BUPROPION HYDROCHLORIDE\DEXTROMETHORPHAN HYDROBROMIDE
     Indication: Product used for unknown indication
     Route: 048
     Dates: start: 202407

REACTIONS (7)
  - Urethral obstruction [Unknown]
  - Discomfort [Unknown]
  - Somnolence [Unknown]
  - Depression [Recovering/Resolving]
  - Anxiety [Unknown]
  - Headache [Unknown]
  - Therapeutic product effect variable [Unknown]

NARRATIVE: CASE EVENT DATE: 20240701
